FAERS Safety Report 14735635 (Version 1)
Quarter: 2018Q2

REPORT INFORMATION
  Report Type: Spontaneous
  Country: IT (occurrence: IT)
  Receive Date: 20180409
  Receipt Date: 20180409
  Transmission Date: 20180711
  Serious: Yes (Other)
  Sender: FDA-Public Use
  Company Number: IT-BAYER-2018-064868

PATIENT
  Age: 62 Year
  Sex: Female

DRUGS (1)
  1. ULTRAVIST [Suspect]
     Active Substance: IOPROMIDE
     Indication: COMPUTERISED TOMOGRAM
     Dosage: 50 ML, ONCE IN TOTAL
     Route: 042
     Dates: start: 20180317, end: 20180317

REACTIONS (3)
  - Venous thrombosis limb [Recovered/Resolved]
  - Device malfunction [Recovered/Resolved]
  - Infusion site extravasation [Recovered/Resolved]

NARRATIVE: CASE EVENT DATE: 20180317
